FAERS Safety Report 6490144-5 (Version None)
Quarter: 2009Q4

REPORT INFORMATION
  Report Type: 
  Country: None (occurrence: None)
  Receive Date: 20091211
  Receipt Date: 20090616
  Transmission Date: 20100525
  Serious: No
  Sender: FDA-Public Use
  Company Number: A0792973A

PATIENT
  Age: 47 Year
  Sex: Female

DRUGS (1)
  1. FLONASE [Suspect]
     Route: 045

REACTIONS (1)
  - DRUG INEFFECTIVE [None]
